FAERS Safety Report 5254357-2 (Version None)
Quarter: 2007Q1

REPORT INFORMATION
  Report Type: 
  Country: None (occurrence: None)
  Receive Date: 20070302
  Receipt Date: 20070221
  Transmission Date: 20070707
  Serious: Yes (Hospitalization)
  Sender: FDA-Public Use
  Company Number: JP-JNJFOC-20070206081

PATIENT
  Age: 34 Year
  Sex: Male

DRUGS (1)
  1. RISPERDAL [Suspect]
     Indication: AGITATION
     Route: 048

REACTIONS (1)
  - AMPHETAMINES POSITIVE [None]
